FAERS Safety Report 6357120-4 (Version None)
Quarter: 2009Q3

REPORT INFORMATION
  Report Type: 
  Country: None (occurrence: None)
  Receive Date: 20090910
  Receipt Date: 20090825
  Transmission Date: 20100115
  Serious: Yes (Death, Hospitalization)
  Sender: FDA-Public Use
  Company Number: 2008AL010606

PATIENT
  Age: 70 Year
  Sex: Female

DRUGS (20)
  1. DIGOXIN [Suspect]
     Indication: CARDIAC FAILURE CHRONIC
     Dosage: 0.125MG, DAILY, PO
     Route: 048
  2. AMIODARONE HCL [Concomitant]
  3. ARIMIDEX [Concomitant]
  4. ASPIRIN [Concomitant]
  5. ALPRAZOLAM [Concomitant]
  6. HYDROCODONE [Concomitant]
  7. ALLOPURINOL [Concomitant]
  8. ALBUTEROL [Concomitant]
  9. NITROGLYCERIN [Concomitant]
  10. METOCLOPRAMIDE [Concomitant]
  11. CLONIDINE [Concomitant]
  12. COREG [Concomitant]
  13. GLIPIZIDE [Concomitant]
  14. IMDUR [Concomitant]
  15. LASIX [Concomitant]
  16. LIPITOR [Concomitant]
  17. LORTAB [Concomitant]
  18. ACCUPRIL [Concomitant]
  19. COMBIVENT [Concomitant]
  20. VITAMINS [Concomitant]

REACTIONS (29)
  - ADNEXA UTERI MASS [None]
  - ALOPECIA [None]
  - ANGINA PECTORIS [None]
  - ANHEDONIA [None]
  - ANXIETY [None]
  - BACK PAIN [None]
  - BLOOD PRESSURE SYSTOLIC INCREASED [None]
  - BREAST CANCER FEMALE [None]
  - CARDIAC ARREST [None]
  - CARDIAC FAILURE CONGESTIVE [None]
  - CARDIOMEGALY [None]
  - DEPRESSION [None]
  - DISEASE RECURRENCE [None]
  - DIZZINESS [None]
  - DRY MOUTH [None]
  - DYSPHAGIA [None]
  - ECONOMIC PROBLEM [None]
  - FLUID RETENTION [None]
  - INJURY [None]
  - LEUKOCYTOSIS [None]
  - LIVER FUNCTION TEST ABNORMAL [None]
  - LYMPHADENOPATHY [None]
  - MALAISE [None]
  - METASTASIS [None]
  - NAUSEA [None]
  - PAIN [None]
  - PALPITATIONS [None]
  - RENAL FAILURE [None]
  - THERAPEUTIC AGENT TOXICITY [None]
